FAERS Safety Report 21767851 (Version 2)
Quarter: 2024Q4

REPORT INFORMATION
  Report Type: Report from Study
  Country: US (occurrence: US)
  Receive Date: 20221222
  Receipt Date: 20241009
  Transmission Date: 20250115
  Serious: No
  Sender: NOVARTIS
  Company Number: US-002147023-NVSC2022US295520

PATIENT
  Sex: Male
  Weight: 94.6 kg

DRUGS (6)
  1. ENTRESTO [Suspect]
     Active Substance: SACUBITRIL\VALSARTAN
     Indication: Cardiac failure chronic
     Dosage: 24/26 MG, BID
     Route: 048
     Dates: start: 20200813, end: 20230309
  2. ENTRESTO [Suspect]
     Active Substance: SACUBITRIL\VALSARTAN
     Dosage: 24/26 MG, BID
     Route: 048
     Dates: start: 20221128
  3. AMIODARONE [Concomitant]
     Active Substance: AMIODARONE
     Indication: Product used for unknown indication
     Dosage: 200 MG, QD
     Route: 048
     Dates: start: 20230716
  4. TORSEMIDE [Concomitant]
     Active Substance: TORSEMIDE
     Indication: Cardiac failure chronic
     Dosage: 40 MG, QD
     Route: 048
     Dates: start: 20230826
  5. TORSEMIDE [Concomitant]
     Active Substance: TORSEMIDE
     Indication: Oedema
  6. ELIQUIS [Concomitant]
     Active Substance: APIXABAN
     Indication: Atrial fibrillation
     Dosage: 5 MG, BID
     Route: 048
     Dates: start: 20211118

REACTIONS (5)
  - Nasopharyngitis [Unknown]
  - Throat irritation [Unknown]
  - Rhinorrhoea [Unknown]
  - Eye pruritus [Unknown]
  - Hypersensitivity [Unknown]
